FAERS Safety Report 9111551 (Version 1)
Quarter: 2013Q1

REPORT INFORMATION
  Report Type: Spontaneous
  Country: US (occurrence: US)
  Receive Date: 20130219
  Receipt Date: 20130219
  Transmission Date: 20140127
  Serious: No
  Sender: FDA-Public Use
  Company Number: US-BRISTOL-MYERS SQUIBB COMPANY-17064296

PATIENT
  Age: 55 Year
  Sex: Female
  Weight: 81.18 kg

DRUGS (9)
  1. ORENCIA [Suspect]
     Dosage: 1DF:125MG/ML?PFS 4 PACK
     Route: 058
     Dates: end: 20120924
  2. AMLODIPINE [Concomitant]
     Dosage: TABS
  3. METOPROLOL [Concomitant]
     Dosage: TABS
  4. SIMVASTATIN [Concomitant]
     Dosage: TABS
  5. VITAMIN D [Concomitant]
     Dosage: 1DF:400UNITS?CAPS
  6. PANTOPRAZOLE [Concomitant]
     Dosage: TABS
  7. LEVOTHYROXINE [Concomitant]
     Dosage: TABS
  8. PROPOXYPHENE [Concomitant]
     Dosage: 1DF:100-325 UNITS NOS?TABS
  9. LEFLUNOMIDE [Concomitant]
     Dosage: TABS

REACTIONS (3)
  - Headache [Unknown]
  - Respiratory tract congestion [Unknown]
  - Local swelling [Unknown]
